FAERS Safety Report 24589798 (Version 1)
Quarter: 2024Q4

REPORT INFORMATION
  Report Type: Spontaneous
  Country: VN (occurrence: VN)
  Receive Date: 20241107
  Receipt Date: 20241107
  Transmission Date: 20250115
  Serious: Yes (Hospitalization, Other)
  Sender: BAYER HEALTHCARE PHARMACEUTICALS INC.
  Company Number: VN-BAYER-2024A158515

PATIENT
  Age: 46 Year
  Sex: Male
  Weight: 51 kg

DRUGS (1)
  1. ULTRAVIST [Suspect]
     Active Substance: IOPROMIDE
     Indication: Computerised tomogram head
     Dosage: 80 ML, ONCE
     Route: 042
     Dates: start: 20241017, end: 20241017

REACTIONS (5)
  - Anaphylactic shock [Unknown]
  - Pruritus [Unknown]
  - Hot flush [Unknown]
  - Loss of consciousness [Unknown]
  - Oxygen saturation decreased [Unknown]

NARRATIVE: CASE EVENT DATE: 20241017
